FAERS Safety Report 20321974 (Version 1)
Quarter: 2022Q1

REPORT INFORMATION
  Report Type: Report from Study
  Country: PK (occurrence: PK)
  Receive Date: 20220111
  Receipt Date: 20220111
  Transmission Date: 20220423
  Serious: Yes (Death)
  Sender: FDA-Public Use
  Company Number: PK-NOVARTISPH-NVSC2022PK004996

PATIENT
  Age: 78 Year
  Sex: Male

DRUGS (1)
  1. GLIVEC [Suspect]
     Active Substance: IMATINIB MESYLATE
     Indication: Chronic myeloid leukaemia
     Dosage: 100 MG 40 D
     Route: 048
     Dates: start: 20191224

REACTIONS (1)
  - Death [Fatal]

NARRATIVE: CASE EVENT DATE: 20210824
